FAERS Safety Report 20181467 (Version 1)
Quarter: 2021Q4

REPORT INFORMATION
  Report Type: Spontaneous
  Country: US (occurrence: None)
  Receive Date: 20211213
  Receipt Date: 20211213
  Transmission Date: 20220303
  Serious: Yes (Hospitalization)
  Sender: FDA-Public Use
  Company Number: None

PATIENT
  Age: 77 Year
  Sex: Male
  Weight: 79.4 kg

DRUGS (1)
  1. BREXUCABTAGENE AUTOLEUCEL [Suspect]
     Active Substance: BREXUCABTAGENE AUTOLEUCEL
     Indication: Mantle cell lymphoma
     Dosage: OTHER FREQUENCY : ONCE;?
     Route: 042
     Dates: start: 20211117, end: 20211117

REACTIONS (8)
  - Hypotension [None]
  - Neutrophil count decreased [None]
  - Confusional state [None]
  - Pleural effusion [None]
  - Dyspnoea [None]
  - Thrombocytopenia [None]
  - Chylothorax [None]
  - Pyrexia [None]

NARRATIVE: CASE EVENT DATE: 20211118
